FAERS Safety Report 9696924 (Version 2)
Quarter: 2013Q4

REPORT INFORMATION
  Report Type: Spontaneous
  Country: US (occurrence: US)
  Receive Date: 20131119
  Receipt Date: 20131119
  Transmission Date: 20140711
  Serious: No
  Sender: FDA-Public Use
  Company Number: US-GILEAD-2007-0013991

PATIENT
  Sex: Female
  Weight: 63.5 kg

DRUGS (18)
  1. LETAIRIS [Suspect]
     Indication: PULMONARY ARTERIAL HYPERTENSION
     Route: 048
     Dates: start: 20070928, end: 200710
  2. GABAPENTIN [Concomitant]
     Route: 048
  3. KETAMINE [Concomitant]
  4. TYLENOL [Concomitant]
     Route: 048
  5. OXYCODONE [Concomitant]
     Route: 048
  6. LOMOTIL [Concomitant]
     Route: 048
  7. OXYGEN [Concomitant]
     Route: 055
  8. REMODULIN [Concomitant]
     Route: 058
  9. AMITRIPTYLINE [Concomitant]
     Route: 048
  10. CLONIDINE [Concomitant]
  11. LECITHIN [Concomitant]
  12. LIDOCAINE [Concomitant]
     Route: 061
  13. POLOXAMER [Concomitant]
     Route: 061
  14. MS CONTIN [Concomitant]
     Route: 048
  15. COUMADIN [Concomitant]
     Route: 048
  16. LIDODERM [Concomitant]
  17. ALLOPURINOL [Concomitant]
     Route: 048
  18. KETOPROFEN [Concomitant]
     Route: 061

REACTIONS (1)
  - Headache [Unknown]
